FAERS Safety Report 9102630 (Version 2)
Quarter: 2013Q1

REPORT INFORMATION
  Report Type: Spontaneous
  Country: IL (occurrence: IL)
  Receive Date: 20130219
  Receipt Date: 20130226
  Transmission Date: 20140127
  Serious: Yes (Death)
  Sender: FDA-Public Use
  Company Number: IL-PFIZER INC-2013059776

PATIENT
  Age: 7 Decade
  Sex: Female

DRUGS (1)
  1. XALKORI [Suspect]
     Indication: LUNG ADENOCARCINOMA METASTATIC
     Dosage: 250 UNK, 2X/DAY

REACTIONS (1)
  - Cerebrovascular accident [Fatal]
